FAERS Safety Report 14085238 (Version 4)
Quarter: 2018Q2

REPORT INFORMATION
  Report Type: Report from Study
  Country: JP (occurrence: JP)
  Receive Date: 20171013
  Receipt Date: 20180517
  Transmission Date: 20180711
  Serious: Yes (Death, Hospitalization, Other)
  Sender: FDA-Public Use
  Company Number: JP-ACTELION-A-CH2017-160671

PATIENT
  Age: 71 Year
  Sex: Male

DRUGS (10)
  1. SPIRONOLACTONE. [Concomitant]
     Active Substance: SPIRONOLACTONE
  2. OPSUMIT [Suspect]
     Active Substance: MACITENTAN
     Dosage: 5 MG, OD
     Route: 048
     Dates: start: 20160507, end: 20160508
  3. WARFARIN [Concomitant]
     Active Substance: WARFARIN
  4. ADCIRCA [Concomitant]
     Active Substance: TADALAFIL
  5. LANSOPRAZOLE. [Concomitant]
     Active Substance: LANSOPRAZOLE
  6. OPSUMIT [Suspect]
     Active Substance: MACITENTAN
     Dosage: 10 MG, OD
     Route: 048
     Dates: start: 20161217, end: 20161222
  7. OPSUMIT [Suspect]
     Active Substance: MACITENTAN
     Indication: PULMONARY ARTERIAL HYPERTENSION
     Dosage: 10 MG, OD
     Route: 048
     Dates: start: 20160509, end: 20161214
  8. BERASUS [Concomitant]
     Active Substance: BERAPROST SODIUM
  9. BIOFERMIN [Concomitant]
     Active Substance: BACILLUS SUBTILIS\LACTOBACILLUS ACIDOPHILUS\STREPTOCOCCUS FAECAIS
  10. OXYGEN. [Concomitant]
     Active Substance: OXYGEN

REACTIONS (13)
  - Pneumonia aspiration [Fatal]
  - Blood alkaline phosphatase increased [Recovering/Resolving]
  - Abdominal pain [Recovering/Resolving]
  - Platelet count decreased [Recovered/Resolved]
  - Aspartate aminotransferase increased [Recovering/Resolving]
  - Anaemia [Not Recovered/Not Resolved]
  - Abdominal tenderness [Recovering/Resolving]
  - Biliary drainage [Unknown]
  - Gamma-glutamyltransferase increased [Recovering/Resolving]
  - Cholecystitis acute [Recovering/Resolving]
  - Pulmonary arterial hypertension [Fatal]
  - Pyrexia [Recovering/Resolving]
  - Alanine aminotransferase increased [Recovering/Resolving]

NARRATIVE: CASE EVENT DATE: 20160531
